FAERS Safety Report 5669116-6 (Version None)
Quarter: 2008Q1

REPORT INFORMATION
  Report Type: 
  Country: None (occurrence: None)
  Receive Date: 20080317
  Receipt Date: 20080306
  Transmission Date: 20080703
  Serious: Yes (Other)
  Sender: FDA-Public Use
  Company Number: US-JNJFOC-20080302371

PATIENT
  Age: 43 Year
  Sex: Female

DRUGS (1)
  1. ULTRAM [Suspect]
     Indication: PAIN
     Route: 048

REACTIONS (1)
  - MENOPAUSE [None]
